FAERS Safety Report 16750783 (Version 2)
Quarter: 2019Q4

REPORT INFORMATION
  Report Type: Spontaneous
  Country: JP (occurrence: JP)
  Receive Date: 20190828
  Receipt Date: 20191025
  Transmission Date: 20200122
  Serious: Yes (Hospitalization)
  Sender: FDA-Public Use
  Company Number: JP-EISAI MEDICAL RESEARCH-EC-2019-060975

PATIENT
  Age: 26 Year
  Sex: Male

DRUGS (8)
  1. SELENICA-R [Suspect]
     Active Substance: VALPROATE SODIUM
     Indication: EPILEPSY
     Route: 048
     Dates: start: 20110621, end: 20190816
  2. FYCOMPA [Suspect]
     Active Substance: PERAMPANEL
     Route: 048
     Dates: start: 20190817, end: 20190817
  3. FYCOMPA [Suspect]
     Active Substance: PERAMPANEL
     Indication: EPILEPSY
     Route: 048
     Dates: start: 20180725, end: 20190816
  4. SELENICA-R [Suspect]
     Active Substance: VALPROATE SODIUM
     Route: 048
     Dates: start: 20190822, end: 20190825
  5. LUNESTA [Suspect]
     Active Substance: ESZOPICLONE
     Route: 048
     Dates: start: 20190817, end: 20190817
  6. LUNESTA [Suspect]
     Active Substance: ESZOPICLONE
     Indication: INSOMNIA
     Route: 048
     Dates: start: 20181010, end: 20190816
  7. SELENICA-R [Suspect]
     Active Substance: VALPROATE SODIUM
     Route: 048
     Dates: start: 20190817, end: 20190817
  8. SELENICA-R [Suspect]
     Active Substance: VALPROATE SODIUM
     Route: 048
     Dates: start: 20190826

REACTIONS (4)
  - Intentional overdose [Recovered/Resolved]
  - Suicide attempt [Recovered/Resolved]
  - Irritability [Recovered/Resolved]
  - Altered state of consciousness [Recovered/Resolved]

NARRATIVE: CASE EVENT DATE: 20190817
